FAERS Safety Report 16923203 (Version 2)
Quarter: 2020Q1

REPORT INFORMATION
  Report Type: Spontaneous
  Country: FR (occurrence: FR)
  Receive Date: 20191016
  Receipt Date: 20200103
  Transmission Date: 20200409
  Serious: Yes (Hospitalization, Other)
  Sender: FDA-Public Use
  Company Number: FR-TEVA-2019-FR-1120407

PATIENT
  Age: 44 Year
  Sex: Female
  Weight: 80 kg

DRUGS (6)
  1. ESOMEPRAZOLE. [Concomitant]
     Active Substance: ESOMEPRAZOLE MAGNESIUM
  2. LASILIX [Concomitant]
     Active Substance: FUROSEMIDE
  3. PRADAXA [Concomitant]
     Active Substance: DABIGATRAN ETEXILATE MESYLATE
  4. BISOCE [Concomitant]
     Active Substance: BISOPROLOL
  5. BRILIQUE [Concomitant]
     Active Substance: TICAGRELOR
  6. RAMIPRIL. [Suspect]
     Active Substance: RAMIPRIL
     Route: 048
     Dates: start: 201905

REACTIONS (2)
  - Acute kidney injury [Recovered/Resolved with Sequelae]
  - Hypovolaemic shock [Recovered/Resolved with Sequelae]

NARRATIVE: CASE EVENT DATE: 201905
